FAERS Safety Report 8075781-9 (Version None)
Quarter: 2012Q1

REPORT INFORMATION
  Report Type: 
  Country: None (occurrence: None)
  Receive Date: 20120127
  Receipt Date: 20120120
  Transmission Date: 20120608
  Serious: Yes (Other)
  Sender: FDA-Public Use
  Company Number: DE-ROXANE LABORATORIES, INC.-2012-RO-00514RO

PATIENT
  Age: 50 Year
  Sex: Male

DRUGS (12)
  1. CYCLOPHOSPHAMIDE [Suspect]
  2. DEXAMETHASONE [Suspect]
     Indication: EVIDENCE BASED TREATMENT
     Dosage: 8 MG
     Route: 042
  3. DACARBAZINE [Suspect]
     Indication: THYROID CANCER
  4. VINCRISTINE [Suspect]
  5. DACARBAZINE [Suspect]
  6. CYCLOPHOSPHAMIDE [Suspect]
  7. GRANISETRON [Suspect]
     Indication: EVIDENCE BASED TREATMENT
     Dosage: 3 MG
     Route: 042
  8. MESNA [Suspect]
     Dosage: 1200 MG
  9. CYCLOPHOSPHAMIDE [Suspect]
     Indication: THYROID CANCER
  10. VINCRISTINE [Suspect]
     Indication: THYROID CANCER
  11. VINCRISTINE [Suspect]
  12. DACARBAZINE [Suspect]

REACTIONS (5)
  - DIARRHOEA [None]
  - HYPERHIDROSIS [None]
  - FATIGUE [None]
  - PANCYTOPENIA [None]
  - INFECTION [None]
